FAERS Safety Report 14203281 (Version 3)
Quarter: 2017Q4

REPORT INFORMATION
  Report Type: Report from Study
  Country: None (occurrence: SE)
  Receive Date: 20171120
  Receipt Date: 20171127
  Transmission Date: 20180321
  Serious: Yes (Death)
  Sender: FDA-Public Use
  Company Number: SE-ABBVIE-17K-150-2167503-00

PATIENT
  Age: 73 Year
  Sex: Male

DRUGS (2)
  1. DUODOPA [Suspect]
     Active Substance: CARBIDOPA\LEVODOPA
     Route: 050
     Dates: start: 20091011, end: 20171115
  2. DUODOPA [Suspect]
     Active Substance: CARBIDOPA\LEVODOPA
     Indication: PARKINSON^S DISEASE
     Route: 050
     Dates: start: 20090904, end: 2009

REACTIONS (4)
  - Product storage error [Recovered/Resolved]
  - Cardiac arrest [Fatal]
  - Snoring [Fatal]
  - Drug administration error [Recovered/Resolved]

NARRATIVE: CASE EVENT DATE: 2009
